FAERS Safety Report 8489232-3 (Version None)
Quarter: 2012Q3

REPORT INFORMATION
  Report Type: 
  Country: None (occurrence: None)
  Receive Date: 20120705
  Receipt Date: 20120626
  Transmission Date: 20120928
  Serious: Yes (Other)
  Sender: FDA-Public Use
  Company Number: JP-VERTEX PHARMACEUTICALS INC.-AE-2012-006755

PATIENT
  Age: 47 Year
  Sex: Male

DRUGS (6)
  1. PEGINTERFERON ALFA-2B [Concomitant]
     Indication: HEPATITIS C
     Route: 058
     Dates: start: 20120316
  2. URSO 250 [Concomitant]
     Route: 048
  3. RIBAVIRIN [Concomitant]
     Route: 048
     Dates: start: 20120409, end: 20120422
  4. RIBAVIRIN [Concomitant]
     Indication: HEPATITIS C
     Route: 048
     Dates: start: 20120316, end: 20120408
  5. RIBAVIRIN [Concomitant]
     Route: 048
     Dates: start: 20120423
  6. TELAVIC (TELAPREVIR) [Suspect]
     Indication: HEPATITIS C
     Route: 048
     Dates: start: 20120316

REACTIONS (1)
  - RASH [None]
